FAERS Safety Report 8537604-0 (Version None)
Quarter: 2012Q3

REPORT INFORMATION
  Report Type: 
  Country: None (occurrence: None)
  Receive Date: 20120725
  Receipt Date: 20120717
  Transmission Date: 20120928
  Serious: Yes (Death, Other)
  Sender: FDA-Public Use
  Company Number: BR-JNJFOC-20120702135

PATIENT
  Age: 80 Year
  Sex: Male

DRUGS (4)
  1. XARELTO [Suspect]
     Indication: PROPHYLAXIS
     Route: 048
     Dates: start: 20120601, end: 20120601
  2. XARELTO [Suspect]
     Route: 048
     Dates: start: 20120601, end: 20120601
  3. XARELTO [Suspect]
     Indication: THROMBOSIS PROPHYLAXIS
     Route: 048
     Dates: start: 20120601, end: 20120601
  4. XARELTO [Suspect]
     Route: 048
     Dates: start: 20120601, end: 20120601

REACTIONS (4)
  - ARTHRITIS INFECTIVE [None]
  - CARDIAC FAILURE CONGESTIVE [None]
  - POST PROCEDURAL HAEMATOMA [None]
  - PNEUMONIA [None]
